FAERS Safety Report 6920770-8 (Version None)
Quarter: 2010Q3

REPORT INFORMATION
  Report Type: 
  Country: None (occurrence: None)
  Receive Date: 20100812
  Receipt Date: 20100804
  Transmission Date: 20110219
  Serious: Yes (Hospitalization)
  Sender: FDA-Public Use
  Company Number: JP-JNJFOC-20100210556

PATIENT
  Sex: Female
  Weight: 63 kg

DRUGS (10)
  1. DOXORUBICIN HCL [Suspect]
     Indication: OVARIAN CANCER RECURRENT
     Dosage: CYCLE 2
     Route: 042
  2. DOXORUBICIN HCL [Suspect]
     Dosage: CYCLE 1
     Route: 042
  3. OMEPRAL [Concomitant]
     Indication: PROPHYLAXIS
     Route: 048
  4. DECADRON [Concomitant]
     Indication: PROPHYLAXIS
     Route: 042
  5. HACHIAZULE [Concomitant]
     Indication: PROPHYLAXIS
     Route: 002
  6. ALLOPURINOL [Concomitant]
     Indication: PROPHYLAXIS
     Route: 002
  7. DECADRON [Concomitant]
     Route: 048
  8. DECADRON [Concomitant]
     Route: 048
  9. DECADRON [Concomitant]
     Route: 048
  10. HIRUDOID CREAM [Concomitant]
     Indication: PROPHYLAXIS
     Route: 061

REACTIONS (1)
  - INTERSTITIAL LUNG DISEASE [None]
